FAERS Safety Report 4885086-2 (Version None)
Quarter: 2006Q1

REPORT INFORMATION
  Report Type: 
  Country: None (occurrence: None)
  Receive Date: 20060119
  Receipt Date: 20051206
  Transmission Date: 20060701
  Serious: Yes (Hospitalization)
  Sender: FDA-Public Use
  Company Number: FR-SANOFI-SYNTHELABO-F01200502674

PATIENT
  Sex: Male
  Weight: 56 kg

DRUGS (6)
  1. OXALIPLATIN [Suspect]
     Indication: OESOPHAGEAL CARCINOMA
     Route: 042
  2. FLUOROURACIL [Suspect]
     Route: 042
  3. LEUCOVORIN [Suspect]
     Route: 042
  4. RADIOTHERAPY [Concomitant]
     Indication: OESOPHAGEAL CARCINOMA
     Dosage: TOTAL DOSE OF FRACTION ADMINISTERED BEFORE SAE: 50
     Route: 050
     Dates: start: 20051024, end: 20051125
  5. ESOMEPRAZOLE [Concomitant]
  6. SCOPOLAMINE COOPER [Concomitant]

REACTIONS (2)
  - OESOPHAGITIS [None]
  - STOMATITIS [None]
